FAERS Safety Report 11668719 (Version 2)
Quarter: 2016Q1

REPORT INFORMATION
  Report Type: Report from Study
  Country: US (occurrence: US)
  Receive Date: 20151027
  Receipt Date: 20160115
  Transmission Date: 20160525
  Serious: Yes (Death, Hospitalization)
  Sender: FDA-Public Use
  Company Number: US-ACTELION-A-NJ2013-77309

PATIENT
  Age: 51 Year
  Sex: Female

DRUGS (2)
  1. FLOLAN [Concomitant]
     Active Substance: EPOPROSTENOL SODIUM
  2. TRACLEER [Suspect]
     Active Substance: BOSENTAN
     Indication: PULMONARY ARTERIAL HYPERTENSION
     Dosage: UNK
     Route: 048
     Dates: end: 20151227

REACTIONS (18)
  - Sepsis [Recovered/Resolved]
  - Vomiting [Recovered/Resolved]
  - Dizziness [Unknown]
  - Bacteraemia [Unknown]
  - Disease progression [Fatal]
  - Anuria [Unknown]
  - Fluid overload [Unknown]
  - Hypotension [Unknown]
  - Intracardiac thrombus [Unknown]
  - Pyrexia [Unknown]
  - Asthenia [Unknown]
  - Cough [Unknown]
  - End stage renal disease [Unknown]
  - Orthopnoea [Unknown]
  - Chills [Unknown]
  - Diarrhoea [Recovered/Resolved]
  - Headache [Unknown]
  - Device related infection [Recovered/Resolved]

NARRATIVE: CASE EVENT DATE: 20121206
